FAERS Safety Report 4777074-1 (Version None)
Quarter: 2005Q3

REPORT INFORMATION
  Report Type: 
  Country: None (occurrence: None)
  Receive Date: 20050915
  Receipt Date: 20050831
  Transmission Date: 20060218
  Serious: Yes (Other)
  Sender: FDA-Public Use
  Company Number: DE-2005-018161

PATIENT
  Age: 47 Year
  Sex: Female

DRUGS (2)
  1. BETASERON [Suspect]
     Dates: start: 20050805
  2. PARACETAMOL [Concomitant]

REACTIONS (6)
  - ALOPECIA [None]
  - CHILLS [None]
  - DRUG DOSE OMISSION [None]
  - DYSPNOEA [None]
  - HEART RATE IRREGULAR [None]
  - LOSS OF CONSCIOUSNESS [None]
